FAERS Safety Report 6932501-6 (Version None)
Quarter: 2010Q3

REPORT INFORMATION
  Report Type: 
  Country: None (occurrence: None)
  Receive Date: 20100817
  Receipt Date: 20100803
  Transmission Date: 20110219
  Serious: Yes (Hospitalization)
  Sender: FDA-Public Use
  Company Number: UTC-001303

PATIENT
  Age: 75 Year
  Sex: Female
  Weight: 41 kg

DRUGS (10)
  1. REMODULIN [Suspect]
     Dosage: 80.64 UG/KG (0.056 UG/KG, 1 IN 1 MIN), SUBCUTANEOUS
     Route: 058
     Dates: start: 20090107
  2. DETROL LA [Concomitant]
  3. CELEBREX [Concomitant]
  4. FLUTICASONE (FLUTICASONE) (SPRAY (NOT INHALATION)) [Concomitant]
  5. NORVASC [Concomitant]
  6. REVATIO [Concomitant]
  7. FIBERTAB (FIBRE, DIETARY) [Concomitant]
  8. PLAVIX [Concomitant]
  9. SIMVASTATIN [Concomitant]
  10. LETAIRIS (AMBRISENTAN) [Concomitant]

REACTIONS (1)
  - PNEUMONIA [None]
